FAERS Safety Report 23766234 (Version 1)
Quarter: 2024Q2

REPORT INFORMATION
  Report Type: Spontaneous
  Country: US (occurrence: US)
  Receive Date: 20240422
  Receipt Date: 20240422
  Transmission Date: 20240716
  Serious: No
  Sender: FDA-Public Use
  Company Number: US-NOVITIUMPHARMA-2024USNVP00545

PATIENT
  Sex: Female

DRUGS (2)
  1. BISOPROLOL FUMARATE [Suspect]
     Active Substance: BISOPROLOL FUMARATE
     Indication: Cardiomyopathy
     Dosage: HALF TABLET
     Dates: start: 20231007
  2. CANDESARTAN [Concomitant]
     Active Substance: CANDESARTAN
     Indication: Cardiomyopathy

REACTIONS (6)
  - Blood pressure increased [Unknown]
  - Product measured potency issue [Unknown]
  - Suspected product quality issue [Unknown]
  - Heart rate increased [Unknown]
  - Atrial flutter [Unknown]
  - Palpitations [Unknown]

NARRATIVE: CASE EVENT DATE: 20231105
